FAERS Safety Report 5531677-5 (Version None)
Quarter: 2007Q4

REPORT INFORMATION
  Report Type: 
  Country: None (occurrence: None)
  Receive Date: 20071128
  Receipt Date: 20071128
  Transmission Date: 20080405
  Serious: Yes (Other)
  Sender: FDA-Public Use
  Company Number: None

PATIENT
  Sex: Female
  Weight: 62.5964 kg

DRUGS (1)
  1. TERCONAZOLE [Suspect]
     Indication: VAGINAL CANDIDIASIS
     Dosage: TERCONAZOLE 0.4% NIGHTLY X 7 VAGINAL
     Route: 067
     Dates: start: 20061005, end: 20061012

REACTIONS (3)
  - DRUG INEFFECTIVE [None]
  - PHARMACEUTICAL PRODUCT COMPLAINT [None]
  - VULVOVAGINAL DISCOMFORT [None]
